FAERS Safety Report 22038808 (Version 1)
Quarter: 2023Q1

REPORT INFORMATION
  Report Type: Spontaneous
  Country: CA (occurrence: CA)
  Receive Date: 20230227
  Receipt Date: 20230227
  Transmission Date: 20230418
  Serious: Yes (Other)
  Sender: FDA-Public Use
  Company Number: CA-CHEPLA-2023002468

PATIENT
  Age: 4 Day
  Sex: Male
  Weight: 1.1000 kg

DRUGS (9)
  1. GANCICLOVIR [Suspect]
     Active Substance: GANCICLOVIR
     Indication: Congenital cytomegalovirus infection
     Dosage: IV INFUSION VIA A CENTRAL LINE OVER 1 HOUR/INITIATED AT DOL 4?DAILY DOSE: 3 MILLIGRAM/KG
     Route: 042
  2. GANCICLOVIR [Suspect]
     Active Substance: GANCICLOVIR
     Indication: Congenital cytomegalovirus infection
     Dosage: DOL 14
     Route: 042
  3. GANCICLOVIR [Suspect]
     Active Substance: GANCICLOVIR
     Indication: Congenital cytomegalovirus infection
     Dosage: DOL 20
     Route: 042
  4. GANCICLOVIR [Suspect]
     Active Substance: GANCICLOVIR
     Indication: Congenital cytomegalovirus infection
     Dosage: DOL 28?DAILY DOSE: 4.4 MILLIGRAM/KG
     Route: 042
  5. VALGANCICLOVIR [Suspect]
     Active Substance: VALGANCICLOVIR
     Indication: Congenital cytomegalovirus infection
     Dosage: DOL-35/TWICE A DAY (7.4 MG/KG/DOSE) ?DAILY DOSE: 24 MILLIGRAM/KG
     Route: 048
  6. VALGANCICLOVIR [Suspect]
     Active Substance: VALGANCICLOVIR
     Indication: Congenital cytomegalovirus infection
     Dosage: DAILY DOSE: 13.6 MILLIGRAM/KG
     Route: 048
  7. VALGANCICLOVIR [Suspect]
     Active Substance: VALGANCICLOVIR
     Indication: Congenital cytomegalovirus infection
     Dosage: DAILY DOSE: 10.4 MILLIGRAM/KG
     Route: 048
  8. VALGANCICLOVIR [Suspect]
     Active Substance: VALGANCICLOVIR
     Indication: Congenital cytomegalovirus infection
     Dosage: DAILY DOSE: 11.6 MILLIGRAM/KG
     Route: 048
  9. VALGANCICLOVIR [Suspect]
     Active Substance: VALGANCICLOVIR
     Indication: Congenital cytomegalovirus infection
     Dosage: DAILY DOSE: 15.6 MILLIGRAM/KG
     Route: 048

REACTIONS (3)
  - Neutropenia neonatal [Unknown]
  - Product use issue [Recovered/Resolved]
  - Product use in unapproved indication [Unknown]
